FAERS Safety Report 14546469 (Version 6)
Quarter: 2018Q2

REPORT INFORMATION
  Report Type: Spontaneous
  Country: PL (occurrence: PL)
  Receive Date: 20180219
  Receipt Date: 20180524
  Transmission Date: 20180711
  Serious: Yes (Hospitalization, Other)
  Sender: FDA-Public Use
  Company Number: PL-PFIZER INC-2018062627

PATIENT
  Age: 59 Year
  Sex: Male

DRUGS (14)
  1. LERCANIDIPINE [Interacting]
     Active Substance: LERCANIDIPINE
     Dosage: MEDICATION TAKEN FROM 3 WEEKS BEFORE ADMISSION TO THE HOSPITAL
  2. LERCANIDIPINE [Interacting]
     Active Substance: LERCANIDIPINE
     Indication: HYPERTENSION
     Dosage: 4 WEEKS BEFORE HOSPITALIZATION
     Route: 065
  3. RITONAVIR. [Suspect]
     Active Substance: RITONAVIR
     Indication: ANTIVIRAL TREATMENT
  4. DASABUVIR [Interacting]
     Active Substance: DASABUVIR
     Indication: ANTIVIRAL TREATMENT
     Dosage: UNK, MEDICATION TAKEN FROM 4 WEEKS BEFORE ADMISSION TO THE HOSPITAL
     Route: 048
  5. METOPROLOL. [Concomitant]
     Active Substance: METOPROLOL
     Dosage: CONTINUOSLY
  6. METOPROLOL. [Concomitant]
     Active Substance: METOPROLOL
     Dosage: TAKEN MORE THAN YEAR
  7. ZOFENOPRIL [Concomitant]
     Active Substance: ZOFENOPRIL
     Dosage: CONTINUOSLY
  8. ATORVASTATIN CALCIUM. [Interacting]
     Active Substance: ATORVASTATIN CALCIUM
     Dosage: MEDICATION TAKEN FROM 3 WEEKS BEFORE ADMISSION TO THE HOSPITAL
  9. OMBITASVIR [Interacting]
     Active Substance: OMBITASVIR
     Indication: ANTIVIRAL TREATMENT
     Dosage: MEDICATION TAKEN FROM 4 WEEKS BEFORE ADMISSION TO THE HOSPITAL
     Route: 048
  10. ZOFENOPRIL [Concomitant]
     Active Substance: ZOFENOPRIL
     Dosage: TAKEN MORE THAN YEAR
  11. ATORVASTATIN CALCIUM. [Suspect]
     Active Substance: ATORVASTATIN CALCIUM
     Indication: CARDIAC DISORDER
     Dosage: 4 WEEKS BEFORE - HOSPITALISATION
     Route: 065
  12. ACETYLSALICYLIC ACID [Suspect]
     Active Substance: ASPIRIN
     Dosage: UNK
     Route: 065
  13. PARITAPREVIR [Suspect]
     Active Substance: PARITAPREVIR
     Indication: ANTIVIRAL TREATMENT
     Dosage: UNK
  14. AMLODIPINE BESILATE [Concomitant]
     Active Substance: AMLODIPINE BESYLATE
     Dosage: 5 MG DURING HOSPITALISATION

REACTIONS (4)
  - Aspartate aminotransferase increased [Recovering/Resolving]
  - Drug interaction [Recovered/Resolved]
  - Alanine aminotransferase increased [Recovered/Resolved]
  - Hepatotoxicity [Recovering/Resolving]
